FAERS Safety Report 5122528-1 (Version None)
Quarter: 2006Q4

REPORT INFORMATION
  Report Type: 
  Country: None (occurrence: None)
  Receive Date: 20061009
  Receipt Date: 20060927
  Transmission Date: 20070319
  Serious: Yes (Hospitalization, Other)
  Sender: FDA-Public Use
  Company Number: US-JNJFOC-20060906377

PATIENT
  Sex: Female

DRUGS (11)
  1. REMICADE [Suspect]
     Route: 042
  2. REMICADE [Suspect]
     Indication: RHEUMATOID ARTHRITIS
     Route: 042
  3. PREDNISONE [Concomitant]
  4. METHOTREXATE [Concomitant]
  5. PREVACID [Concomitant]
  6. ZOLOFT [Concomitant]
  7. CELEBREX [Concomitant]
  8. ATIVAN [Concomitant]
     Dosage: DOSAGE 1-2 MG OD
  9. PREMARIN [Concomitant]
  10. FOLIC ACID [Concomitant]
     Route: 048
  11. NITROSTAT [Concomitant]

REACTIONS (3)
  - CSF PROTEIN INCREASED [None]
  - DIPLEGIA [None]
  - MYELOPATHY [None]
